FAERS Safety Report 10070988 (Version 2)
Quarter: 2014Q2

REPORT INFORMATION
  Report Type: Spontaneous
  Country: FR (occurrence: FR)
  Receive Date: 20140410
  Receipt Date: 20140425
  Transmission Date: 20141212
  Serious: Yes (Death, Hospitalization)
  Sender: FDA-Public Use
  Company Number: FR-GLAXOSMITHKLINE-B0982893A

PATIENT
  Age: 55 Year
  Sex: Female

DRUGS (9)
  1. ARIXTRA [Suspect]
     Indication: PRODUCT USED FOR UNKNOWN INDICATION
     Dosage: 2.5MG PER DAY
     Route: 058
     Dates: start: 20120207, end: 201402
  2. AVASTIN (BEVACIZUMAB) [Suspect]
     Indication: GLIOBLASTOMA
     Route: 042
     Dates: start: 20121211, end: 20140206
  3. CAMPTO [Concomitant]
     Route: 065
     Dates: start: 20110414
  4. AMLOR [Concomitant]
     Route: 065
  5. HYTACAND [Concomitant]
     Route: 065
  6. DEPAKINE CHRONO [Concomitant]
     Route: 065
  7. KEPPRA [Concomitant]
     Route: 065
  8. INEXIUM [Concomitant]
     Route: 065
  9. MIANSERINE [Concomitant]
     Route: 065

REACTIONS (3)
  - Cerebral haemorrhage [Fatal]
  - Altered state of consciousness [Unknown]
  - Incorrect drug administration duration [Unknown]
